FAERS Safety Report 21314769 (Version 1)
Quarter: 2022Q3

REPORT INFORMATION
  Report Type: Spontaneous
  Country: US (occurrence: None)
  Receive Date: 20220909
  Receipt Date: 20220909
  Transmission Date: 20221027
  Serious: No
  Sender: FDA-Public Use
  Company Number: US-ARIS GLOBAL-202111-2009

PATIENT
  Sex: Female

DRUGS (14)
  1. OXERVATE [Suspect]
     Active Substance: CENEGERMIN-BKBJ
     Indication: Neurotrophic keratopathy
     Dosage: ADMINISTERED 3-4 TIMES DAILY
     Route: 047
     Dates: start: 20211023
  2. PREDNISOLONE-NEPAFENAC [Concomitant]
  3. PRED FORTE [Concomitant]
     Active Substance: PREDNISOLONE ACETATE
     Dosage: DROPS SUSPENSION
  4. TYLENOL [Concomitant]
     Active Substance: ACETAMINOPHEN
  5. METOPROLOL SUCCINATE [Concomitant]
     Active Substance: METOPROLOL SUCCINATE
  6. GLIPIZIDE [Concomitant]
     Active Substance: GLIPIZIDE
  7. RAMIPRIL [Concomitant]
     Active Substance: RAMIPRIL
  8. SIMVASTATIN [Concomitant]
     Active Substance: SIMVASTATIN
  9. ONGLYZA [Concomitant]
     Active Substance: SAXAGLIPTIN HYDROCHLORIDE
  10. REFRESH OPTIVE [Concomitant]
     Active Substance: CARBOXYMETHYLCELLULOSE SODIUM\GLYCERIN
     Dosage: 0.5%-0.9%
  11. RESTASIS [Concomitant]
     Active Substance: CYCLOSPORINE
  12. VALACYCLOVIR [Concomitant]
     Active Substance: VALACYCLOVIR HYDROCHLORIDE
  13. LATANOPROST [Concomitant]
     Active Substance: LATANOPROST
  14. BESIVANCE [Concomitant]
     Active Substance: BESIFLOXACIN
     Dosage: DROPS SUSPENSION

REACTIONS (3)
  - Intentional product misuse [Unknown]
  - Eye irritation [Unknown]
  - Infection [Unknown]
